FAERS Safety Report 9162104 (Version 1)
Quarter: 2013Q1

REPORT INFORMATION
  Report Type: Spontaneous
  Country: GB (occurrence: None)
  Receive Date: 20130220
  Receipt Date: 20130220
  Transmission Date: 20140127
  Serious: Yes (Hospitalization)
  Sender: FDA-Public Use
  Company Number: 2013-00422

PATIENT
  Age: 53 Year
  Sex: Female
  Weight: 74.38 kg

DRUGS (7)
  1. LOSARTAN (UNKNOWN) (LOSARTAN) [Suspect]
     Indication: HYPERTENSION
     Dosage: +VE
     Route: 048
     Dates: start: 20111001, end: 20120813
  2. AMLODIPINE [Concomitant]
  3. IBUPROFEN (UNKNOWN) [Concomitant]
  4. LEVOTHYROXINE (UNKNOWN) [Concomitant]
  5. NORETHISTERONE [Suspect]
  6. PARACETAMOL [Concomitant]
  7. CODEINE PHOSPHATE + PARACETAMOL (SOLPADOL)(UNKNOWN) [Concomitant]

REACTIONS (6)
  - Dyspnoea exertional [None]
  - Pruritus generalised [None]
  - Loss of consciousness [None]
  - Unresponsive to stimuli [None]
  - Arthritis [None]
  - Cardiac arrest [None]
